FAERS Safety Report 8936898 (Version 1)
Quarter: 2012Q4

REPORT INFORMATION
  Report Type: 
  Country: IT (occurrence: IT)
  Receive Date: 20121130
  Receipt Date: 20121130
  Transmission Date: 20130627
  Serious: Yes (Hospitalization)
  Sender: FDA-Public Use
  Company Number: PHHY2012IT109883

PATIENT
  Age: 35 Year
  Sex: Male

DRUGS (1)
  1. AMOXICILLIN TRIHYDRATE+POTASSIUM CLAVULANATE [Suspect]
     Indication: TOOTH ABSCESS
     Dosage: UNK
     Route: 048
     Dates: start: 20120816, end: 20120816

REACTIONS (2)
  - Dyspnoea [Recovering/Resolving]
  - Rash pruritic [Recovering/Resolving]
